FAERS Safety Report 5616461-6 (Version None)
Quarter: 2008Q1

REPORT INFORMATION
  Report Type: 
  Country: None (occurrence: None)
  Receive Date: 20080204
  Receipt Date: 20080107
  Transmission Date: 20080703
  Serious: Yes (Life-Threatening, Hospitalization)
  Sender: FDA-Public Use
  Company Number: LTI2007A00321

PATIENT
  Age: 50 Year
  Sex: Male

DRUGS (8)
  1. ACTOS [Suspect]
     Indication: TYPE 2 DIABETES MELLITUS
     Dosage: 30 MG (30 MG, 1 IN 1 D)
     Route: 048
     Dates: start: 20070321, end: 20070601
  2. KENZEN (CANDESARTAN CILEXETIL) [Concomitant]
  3. METFORMIN HCL [Concomitant]
  4. ATORVASTATIN CALCIUM [Concomitant]
  5. LASILIX - SLOW RELEASE (FUROSEMIDE) [Concomitant]
  6. ALLOPURINOL [Concomitant]
  7. CORENITEC (HYDROCHLOROTHIAZIDE, ENALAPRIL MALEATE) [Concomitant]
  8. RENITEC (ENALAPRIL) [Concomitant]

REACTIONS (9)
  - CARDIAC FAILURE [None]
  - CORONARY ARTERY DISEASE [None]
  - DIARRHOEA [None]
  - ELECTROCARDIOGRAM ST SEGMENT ABNORMAL [None]
  - HAEMOGLOBIN DECREASED [None]
  - HYPERTENSIVE CARDIOMYOPATHY [None]
  - PULMONARY OEDEMA [None]
  - RENAL FAILURE ACUTE [None]
  - SINUS TACHYCARDIA [None]
